FAERS Safety Report 8464543-6 (Version None)
Quarter: 2012Q2

REPORT INFORMATION
  Report Type: 
  Country: None (occurrence: None)
  Receive Date: 20120323
  Receipt Date: 20111014
  Transmission Date: 20120825
  Serious: Yes (Other)
  Sender: FDA-Public Use
  Company Number: 163-21880-11101901

PATIENT
  Age: 81 Year
  Sex: Female
  Weight: 55.3388 kg

DRUGS (2)
  1. REVLIMID [Suspect]
     Indication: MULTIPLE MYELOMA
     Dosage: 25 MG, DAILY FOR 21 DAYS, THEN OFF 7 DAYS, PO
     Route: 048
     Dates: start: 20100204, end: 20101216
  2. REVLIMID [Suspect]
     Indication: MULTIPLE MYELOMA
     Dosage: 25 MG, DAILY FOR 21 DAYS, THEN OFF 7 DAYS, PO
     Route: 048
     Dates: start: 20110916

REACTIONS (4)
  - CATARACT [None]
  - DIARRHOEA [None]
  - DRY SKIN [None]
  - RASH ERYTHEMATOUS [None]
